FAERS Safety Report 4983100-7 (Version None)
Quarter: 2006Q2

REPORT INFORMATION
  Report Type: 
  Country: None (occurrence: None)
  Receive Date: 20060419
  Receipt Date: 20060406
  Transmission Date: 20061013
  Serious: Yes (Life-Threatening, Hospitalization)
  Sender: FDA-Public Use
  Company Number: 200411858GDS

PATIENT
  Age: 71 Year
  Sex: Male
  Weight: 73 kg

DRUGS (6)
  1. SORAFENIB [Suspect]
     Indication: NEOPLASM
     Dosage: 400 MG, BID, ORAL
     Route: 048
     Dates: start: 20031129, end: 20040510
  2. LCV 39 (LEUCOVORIN) [Suspect]
     Indication: CHEMOTHERAPY
     Dosage: INTRAVENOUS
     Route: 042
     Dates: start: 20031124, end: 20040319
  3. ATENOLOL [Concomitant]
  4. MEGACE [Concomitant]
  5. BONDORMIN [Concomitant]
  6. XANAGIS [Concomitant]

REACTIONS (5)
  - ACUTE MYOCARDIAL INFARCTION [None]
  - DISEASE PROGRESSION [None]
  - DUODENAL ULCER [None]
  - GASTRIC ULCER [None]
  - GASTROINTESTINAL HAEMORRHAGE [None]
